FAERS Safety Report 4467041-X (Version None)
Quarter: 2004Q4

REPORT INFORMATION
  Report Type: 
  Country: None (occurrence: None)
  Receive Date: 20041004
  Receipt Date: 20040917
  Transmission Date: 20050328
  Serious: Yes (Other)
  Sender: FDA-Public Use
  Company Number: A-US2004-07046

PATIENT
  Age: 75 Year
  Sex: Female

DRUGS (6)
  1. TRACLEER [Suspect]
     Indication: PULMONARY HYPERTENSION
     Dosage: 125 MG, BID, ORAL; 62/5 MG, BID, ORAL; 31.25 MG, BID
     Route: 048
     Dates: start: 20040501, end: 20040609
  2. TRACLEER [Suspect]
     Indication: PULMONARY HYPERTENSION
     Dosage: 125 MG, BID, ORAL; 62/5 MG, BID, ORAL; 31.25 MG, BID
     Route: 048
     Dates: start: 20040610, end: 20040708
  3. TRACLEER [Suspect]
     Indication: PULMONARY HYPERTENSION
     Dosage: 125 MG, BID, ORAL; 62/5 MG, BID, ORAL; 31.25 MG, BID
     Route: 048
     Dates: start: 20040903, end: 20040910
  4. LISINOPRIL [Concomitant]
  5. CELEBREX [Concomitant]
  6. ACETYLSALICYLIC ACID SRT [Concomitant]

REACTIONS (4)
  - ALANINE AMINOTRANSFERASE INCREASED [None]
  - ASPARTATE AMINOTRANSFERASE INCREASED [None]
  - BLOOD ALKALINE PHOSPHATASE INCREASED [None]
  - LIVER FUNCTION TEST ABNORMAL [None]
